FAERS Safety Report 9457925 (Version 2)
Quarter: 2013Q3

REPORT INFORMATION
  Report Type: Report from Study
  Country: US (occurrence: US)
  Receive Date: 20130814
  Receipt Date: 20130821
  Transmission Date: 20140515
  Serious: Yes (Death)
  Sender: FDA-Public Use
  Company Number: US-ASTELLAS-2013US008456

PATIENT
  Age: 71 Year
  Sex: Male

DRUGS (1)
  1. ERLOTINIB TABLET [Suspect]
     Indication: LUNG NEOPLASM MALIGNANT
     Dosage: 150 MG, UNKNOWN/D
     Route: 065

REACTIONS (4)
  - Chronic obstructive pulmonary disease [Fatal]
  - Coronary artery disease [Fatal]
  - Malignant neoplasm progression [Fatal]
  - Pneumonia [Fatal]
